FAERS Safety Report 4690684-5 (Version None)
Quarter: 2005Q2

REPORT INFORMATION
  Report Type: 
  Country: None (occurrence: None)
  Receive Date: 20050615
  Receipt Date: 20020509
  Transmission Date: 20051028
  Serious: Yes (Other)
  Sender: FDA-Public Use
  Company Number: JP-ABBOTT-02P-087-0192913-00

PATIENT
  Sex: Male

DRUGS (26)
  1. KALETRA [Suspect]
     Indication: HIV INFECTION
     Route: 048
     Dates: start: 20010531, end: 20040524
  2. DIDANOSINE [Suspect]
     Indication: HIV INFECTION
     Route: 048
     Dates: start: 20010401, end: 20010522
  3. STAVUDINE [Suspect]
     Indication: HIV INFECTION
     Route: 048
     Dates: start: 20010401, end: 20010522
  4. AMPRENAVIR [Suspect]
     Indication: HIV INFECTION
     Route: 048
     Dates: start: 20010401, end: 20010522
  5. LAMIVUDINE [Suspect]
     Indication: HIV INFECTION
     Route: 048
     Dates: start: 20010531
  6. ABACAVIR [Suspect]
     Indication: HIV INFECTION
     Route: 048
     Dates: start: 20010531, end: 20020726
  7. ZIDOVUDINE [Suspect]
     Route: 048
     Dates: start: 20010531
  8. ATAZANAVIR [Suspect]
     Indication: HIV INFECTION
     Route: 048
     Dates: start: 20040525
  9. TEPRENONE [Concomitant]
     Indication: GASTRITIS
     Route: 048
     Dates: start: 20010401
  10. GLYCYRON [Concomitant]
     Indication: HEPATITIS
     Route: 048
     Dates: start: 20010401, end: 20010801
  11. PENTAMIDINE ISETHIONATE [Concomitant]
     Indication: INFECTION PROPHYLAXIS
     Route: 048
     Dates: start: 20010401
  12. NICARDIPINE HCL [Concomitant]
     Indication: HYPERTENSION
     Route: 048
     Dates: start: 20010401
  13. SODIUM ALGINATE [Concomitant]
     Indication: GASTRITIS
     Route: 048
     Dates: start: 20010401, end: 20010510
  14. FAMOTIDINE [Concomitant]
     Indication: GASTRITIS
     Route: 048
     Dates: start: 20010401, end: 20011107
  15. FAMOTIDINE [Concomitant]
     Dates: start: 20040525
  16. AMPHOTERICIN B [Concomitant]
     Indication: CANDIDIASIS
     Route: 002
     Dates: start: 20010401, end: 20020411
  17. RURIOPCTOCOG ALFA [Concomitant]
     Indication: FACTOR VIII DEFICIENCY
     Route: 048
     Dates: start: 20010401
  18. ANTIHEMOPHILIC FACTOR (HUMAN) [Concomitant]
     Indication: FACTOR VIII DEFICIENCY
     Route: 048
     Dates: start: 20010401
  19. ALLOPURINOL [Concomitant]
     Indication: HYPERURICAEMIA
     Route: 048
     Dates: start: 20010401
  20. VITAMINS [Concomitant]
     Indication: NUTRITIONAL SUPPORT
     Route: 048
     Dates: start: 20010401, end: 20010510
  21. MOSAPRIDE CITRATE [Concomitant]
     Indication: GASTROINTESTINAL DISORDER
     Route: 048
     Dates: start: 20010401
  22. ENZYME PREPARATIONS [Concomitant]
     Indication: GASTROINTESTINAL DISORDER
     Route: 048
     Dates: start: 20010614
  23. URSODEOXYCHOLIC ACID [Concomitant]
     Indication: HEPATITIS
     Route: 048
  24. LANSOPRAZOLE [Concomitant]
     Indication: GASTROINTESTINAL DISORDER
     Route: 048
     Dates: start: 20021108
  25. RIBAVIRIN [Concomitant]
     Indication: HEPATITIS C
     Dates: start: 20050307, end: 20050331
  26. PEGINTERFERON ALFA-2B [Concomitant]
     Indication: HEPATITIS C
     Dates: start: 20050307, end: 20050331

REACTIONS (5)
  - ACUTE ABDOMEN [None]
  - DIARRHOEA [None]
  - HEPATIC FUNCTION ABNORMAL [None]
  - HYPERTENSION [None]
  - LEUKOPENIA [None]
